FAERS Safety Report 23080424 (Version 1)
Quarter: 2023Q4

REPORT INFORMATION
  Report Type: Spontaneous
  Country: KR (occurrence: KR)
  Receive Date: 20231018
  Receipt Date: 20231018
  Transmission Date: 20240109
  Serious: Yes (Life-Threatening, Hospitalization)
  Sender: FDA-Public Use
  Company Number: KR-Merck Healthcare KGaA-2023480848

PATIENT
  Age: 36 Year
  Sex: Female

DRUGS (1)
  1. METFORMIN HYDROCHLORIDE [Suspect]
     Active Substance: METFORMIN HYDROCHLORIDE
     Indication: Polycystic ovarian syndrome

REACTIONS (4)
  - Toxicity to various agents [Recovered/Resolved]
  - Lactic acidosis [Recovered/Resolved]
  - Overdose [Recovered/Resolved]
  - Off label use [Unknown]
